FAERS Safety Report 7351077-5 (Version None)
Quarter: 2011Q1

REPORT INFORMATION
  Report Type: 
  Country: None (occurrence: None)
  Receive Date: 20110314
  Receipt Date: 20110228
  Transmission Date: 20110831
  Serious: Yes (Hospitalization)
  Sender: FDA-Public Use
  Company Number: US-BAYER-201026207NA

PATIENT
  Sex: Female
  Weight: 83 kg

DRUGS (14)
  1. ZOLOFT [Concomitant]
     Indication: DEPRESSION
     Dosage: 50 MG (DAILY DOSE), ,
     Dates: start: 20080101
  2. YAZ [Suspect]
     Dosage: UNK UNK, UNK
     Route: 048
     Dates: start: 20090601, end: 20090922
  3. YAZ [Suspect]
     Indication: PREMENSTRUAL SYNDROME
     Route: 048
     Dates: start: 20080701, end: 20090315
  4. YASMIN [Suspect]
     Indication: PREMENSTRUAL SYNDROME
     Route: 048
     Dates: start: 20031201, end: 20040115
  5. ADVAIR DISKUS 100/50 [Concomitant]
     Indication: ASTHMA
     Dosage: 2 DF (DAILY DOSE), BID,
     Dates: start: 20050101
  6. PREDNISONE [Concomitant]
     Indication: COUGH
  7. PREDNISONE [Concomitant]
     Indication: WHEEZING
     Dosage: 20 MG (DAILY DOSE), ,
     Dates: start: 20090901, end: 20090908
  8. ALBUTEROL SULFATE [Concomitant]
     Indication: MULTIPLE ALLERGIES
     Dosage: 2.5 MG (DAILY DOSE), ,
  9. OVCON-35 [Concomitant]
     Dates: start: 20050101
  10. ALBUTEROL SULFATE [Concomitant]
     Indication: ASTHMA
  11. MAXAIR [Concomitant]
     Indication: MULTIPLE ALLERGIES
     Dates: start: 20080101
  12. MAXAIR [Concomitant]
     Indication: ASTHMA
     Dates: start: 20090101
  13. SINGULAIR [Concomitant]
     Indication: MULTIPLE ALLERGIES
     Dosage: 10 MG (DAILY DOSE), ,
     Dates: start: 20050101
  14. FLUOXETINE [Concomitant]
     Dates: start: 20050101

REACTIONS (1)
  - DEEP VEIN THROMBOSIS [None]
